FAERS Safety Report 5818165-3 (Version None)
Quarter: 2008Q3

REPORT INFORMATION
  Report Type: 
  Country: None (occurrence: None)
  Receive Date: 20080722
  Receipt Date: 20071113
  Transmission Date: 20090109
  Serious: Yes (Other)
  Sender: FDA-Public Use
  Company Number: US-BAYER-US-2007-042986

PATIENT
  Age: 57 Year
  Sex: Female
  Weight: 68 kg

DRUGS (11)
  1. MAGNEVIST [Suspect]
     Indication: NUCLEAR MAGNETIC RESONANCE IMAGING BRAIN
     Dosage: UNIT DOSE: 15 ML
     Route: 042
     Dates: start: 20071029, end: 20071029
  2. LISINOPRIL [Concomitant]
     Dosage: UNIT DOSE: 10 MG
  3. SYNTHROID [Concomitant]
     Dosage: UNIT DOSE: 112 ?G
  4. HYDROCHLOROTHIAZIDE [Concomitant]
     Dosage: UNIT DOSE: 25 MG
  5. ASPIRIN [Concomitant]
     Dosage: UNIT DOSE: 81 MG
  6. MAGNESIUM GLUCONATE [Concomitant]
  7. ^TRIPHALA^ [Concomitant]
  8. ^ANTIOXIDANT^ [Concomitant]
  9. MULTI-VITAMINS [Concomitant]
  10. VITAMIN B6 [Concomitant]
     Route: 050
     Dates: start: 20070929, end: 20071029
  11. VITAMIN B-12 [Concomitant]

REACTIONS (7)
  - ANAPHYLACTIC REACTION [None]
  - CHEST PAIN [None]
  - DYSPNOEA [None]
  - EYELID OEDEMA [None]
  - OEDEMA PERIPHERAL [None]
  - PAIN IN EXTREMITY [None]
  - URTICARIA [None]
